FAERS Safety Report 8145096 (Version 3)
Quarter: 2020Q3

REPORT INFORMATION
  Report Type: Report from Study
  Country: US (occurrence: US)
  Receive Date: 20110920
  Receipt Date: 20111021
  Transmission Date: 20201105
  Serious: Yes (Hospitalization, Other)
  Sender: FDA-Public Use
  Company Number: US-ACTELION-A-US2011-54041

PATIENT

DRUGS (18)
  1. LISINOPRIL. [Suspect]
     Active Substance: LISINOPRIL
  2. LANTUS [Concomitant]
     Active Substance: INSULIN GLARGINE
  3. IRON [Concomitant]
     Active Substance: IRON
  4. OXYCONTIN [Concomitant]
     Active Substance: OXYCODONE HYDROCHLORIDE
  5. ROCALTROL [Concomitant]
     Active Substance: CALCITRIOL
  6. TRACLEER [Suspect]
     Active Substance: BOSENTAN
     Dosage: 62.5
     Route: 048
     Dates: start: 20110826, end: 20110909
  7. SALSALATE. [Suspect]
     Active Substance: SALSALATE
  8. CELLCEPT [Concomitant]
     Active Substance: MYCOPHENOLATE MOFETIL\MYCOPHENOLATE MOFETIL HYDROCHLORIDE
  9. LASIX [Concomitant]
     Active Substance: FUROSEMIDE
  10. SYNTHROID [Concomitant]
     Active Substance: LEVOTHYROXINE SODIUM
  11. K?DUR [Concomitant]
     Active Substance: POTASSIUM CHLORIDE
  12. TRACLEER [Suspect]
     Active Substance: BOSENTAN
     Indication: PULMONARY ARTERIAL HYPERTENSION
     Dosage: 125
     Route: 048
     Dates: start: 20020112, end: 20110825
  13. TRACLEER [Suspect]
     Active Substance: BOSENTAN
     Dosage: 125
     Route: 048
     Dates: start: 20110910
  14. VITAMIN D2 [Concomitant]
     Active Substance: ERGOCALCIFEROL
  15. COUMADIN [Concomitant]
     Active Substance: WARFARIN SODIUM
  16. VITAMIN B6 [Concomitant]
     Active Substance: PYRIDOXINE HYDROCHLORIDE
  17. REVATIO [Concomitant]
     Active Substance: SILDENAFIL CITRATE
  18. NEXIUM [Concomitant]
     Active Substance: ESOMEPRAZOLE MAGNESIUM

REACTIONS (6)
  - Alanine aminotransferase increased [Recovered/Resolved]
  - Aspartate aminotransferase increased [Recovered/Resolved]
  - Dyspnoea [Recovered/Resolved]
  - Transaminases increased [Recovered/Resolved]
  - Blood creatinine increased [Recovered/Resolved]
  - Dehydration [Recovered/Resolved]

NARRATIVE: CASE EVENT DATE: 20110822
